FAERS Safety Report 24460115 (Version 3)
Quarter: 2025Q1

REPORT INFORMATION
  Report Type: Report from Study
  Country: CA (occurrence: CA)
  Receive Date: 20241018
  Receipt Date: 20250207
  Transmission Date: 20250409
  Serious: Yes (Other)
  Sender: TAKEDA
  Company Number: CA-TAKEDA-2024TUS052261

PATIENT
  Sex: Female

DRUGS (6)
  1. VEDOLIZUMAB [Suspect]
     Active Substance: VEDOLIZUMAB
     Indication: Colitis ulcerative
  2. VEDOLIZUMAB [Suspect]
     Active Substance: VEDOLIZUMAB
     Indication: Colitis ulcerative
     Dosage: 108 MILLIGRAM, Q2WEEKS
     Dates: start: 20240917
  3. VEDOLIZUMAB [Suspect]
     Active Substance: VEDOLIZUMAB
     Dosage: 108 MILLIGRAM, 1/WEEK
  4. PENTASA [Concomitant]
     Active Substance: MESALAMINE
     Dosage: 200 MILLIGRAM, QD
     Dates: start: 2020
  5. LORAZEPAM [Concomitant]
     Active Substance: LORAZEPAM
     Indication: Panic attack
  6. CANNABIS SATIVA SUBSP. INDICA TOP [Concomitant]
     Active Substance: CANNABIS SATIVA SUBSP. INDICA TOP
     Dosage: UNK UNK, QD
     Dates: start: 202303

REACTIONS (6)
  - Haematochezia [Unknown]
  - Off label use [Unknown]
  - Mucous stools [Unknown]
  - Drug effect less than expected [Unknown]
  - Sinus disorder [Unknown]
  - Influenza [Unknown]
